FAERS Safety Report 6569004-7 (Version None)
Quarter: 2010Q1

REPORT INFORMATION
  Report Type: 
  Country: None (occurrence: None)
  Receive Date: 20100203
  Receipt Date: 20100122
  Transmission Date: 20100710
  Serious: Yes (Hospitalization)
  Sender: FDA-Public Use
  Company Number: DE-WYE-H13188310

PATIENT
  Age: 51 Year
  Sex: Female
  Weight: 75 kg

DRUGS (5)
  1. PANTOPRAZOLE [Suspect]
     Indication: PROPHYLAXIS AGAINST GASTROINTESTINAL ULCER
     Route: 048
     Dates: start: 20000101
  2. ETHANOL [Suspect]
     Dosage: UNKNOWN
     Route: 048
     Dates: start: 19910101
  3. PARACETAMOL [Suspect]
     Route: 048
     Dates: start: 19990101, end: 20090923
  4. RASILEZ HCT [Suspect]
     Indication: HYPERTENSION
     Route: 048
     Dates: end: 20091001
  5. IBUPROFEN ^RATIOPHARM^ [Suspect]
     Indication: INTERVERTEBRAL DISC DISORDER
     Route: 048
     Dates: start: 20090924, end: 20091001

REACTIONS (4)
  - FATTY LIVER ALCOHOLIC [None]
  - HEPATIC CIRRHOSIS [None]
  - HEPATITIS ALCOHOLIC [None]
  - HEPATITIS CHOLESTATIC [None]
